FAERS Safety Report 19076807 (Version 4)
Quarter: 2021Q2

REPORT INFORMATION
  Report Type: Spontaneous
  Country: JP (occurrence: JP)
  Receive Date: 20210331
  Receipt Date: 20210601
  Transmission Date: 20210717
  Serious: Yes (Life-Threatening)
  Sender: FDA-Public Use
  Company Number: NVSJ2021JP005024

PATIENT
  Age: 64 Year
  Sex: Male
  Weight: 69 kg

DRUGS (9)
  1. PREDNISOLONE. [Concomitant]
     Active Substance: PREDNISOLONE
     Indication: PEMPHIGOID
     Dosage: 20 MG
     Route: 065
     Dates: start: 201912
  2. CICLOSPORIN [Suspect]
     Active Substance: CYCLOSPORINE
     Dosage: 300 MG
     Route: 048
     Dates: start: 201912
  3. METGLUCO [Concomitant]
     Active Substance: METFORMIN HYDROCHLORIDE
     Indication: DIABETES MELLITUS
     Dosage: 500 MG, BID
     Route: 048
     Dates: start: 20200205, end: 20210313
  4. GLIMEPIRIDE. [Concomitant]
     Active Substance: GLIMEPIRIDE
     Indication: PRODUCT USED FOR UNKNOWN INDICATION
     Dosage: 0.5 MG
     Route: 065
     Dates: start: 20200304, end: 20200625
  5. DOVOBET [Concomitant]
     Active Substance: BETAMETHASONE\CALCIPOTRIENE
     Indication: PSORIASIS
     Dosage: 15 G
     Route: 065
     Dates: start: 20201210
  6. COSENTYX [Suspect]
     Active Substance: SECUKINUMAB
     Indication: PSORIASIS
     Dosage: 300 MG
     Route: 058
     Dates: start: 20200205
  7. CICLOSPORIN [Suspect]
     Active Substance: CYCLOSPORINE
     Indication: PEMPHIGOID
     Dosage: 250 MG
     Route: 048
     Dates: start: 2006
  8. CICLOSPORIN [Suspect]
     Active Substance: CYCLOSPORINE
     Dosage: 200 MG
     Route: 048
     Dates: start: 20200205, end: 20200527
  9. PREDNISOLONE. [Concomitant]
     Active Substance: PREDNISOLONE
     Dosage: 20 MG
     Route: 065
     Dates: start: 20200205, end: 20200820

REACTIONS (4)
  - Musculoskeletal disorder [Not Recovered/Not Resolved]
  - Gait disturbance [Not Recovered/Not Resolved]
  - Central nervous system lymphoma [Not Recovered/Not Resolved]
  - Hemiplegia [Not Recovered/Not Resolved]

NARRATIVE: CASE EVENT DATE: 20210301
